FAERS Safety Report 6193734-2 (Version None)
Quarter: 2009Q2

REPORT INFORMATION
  Report Type: 
  Country: None (occurrence: None)
  Receive Date: 20090518
  Receipt Date: 20090506
  Transmission Date: 20091009
  Serious: Yes (Other)
  Sender: FDA-Public Use
  Company Number: US-PFIZER INC-2009210305

PATIENT
  Sex: Female

DRUGS (5)
  1. PROVERA [Suspect]
     Indication: HORMONE REPLACEMENT THERAPY
     Dosage: 2.5-10 MG
  2. ESTRADIOL [Suspect]
     Indication: HORMONE REPLACEMENT THERAPY
  3. ESTRACE [Suspect]
     Indication: HORMONE REPLACEMENT THERAPY
  4. MEDROXYPROGESTERONE ACETATE [Suspect]
     Indication: HORMONE REPLACEMENT THERAPY
  5. PREMARIN [Suspect]
     Indication: HORMONE REPLACEMENT THERAPY
     Dosage: UNK
     Dates: start: 20000101, end: 20020301

REACTIONS (1)
  - CEREBROVASCULAR ACCIDENT [None]
